FAERS Safety Report 7536744-2 (Version None)
Quarter: 2011Q2

REPORT INFORMATION
  Report Type: 
  Country: None (occurrence: None)
  Receive Date: 20110609
  Receipt Date: 20110602
  Transmission Date: 20111010
  Serious: Yes (Other)
  Sender: FDA-Public Use
  Company Number: B0724896A

PATIENT
  Age: 48 Year
  Sex: Female

DRUGS (3)
  1. XELODA [Concomitant]
     Dates: start: 20100201
  2. TYKERB [Suspect]
     Dates: start: 20100201
  3. METHOTREXATE [Concomitant]
     Dates: start: 20100201

REACTIONS (1)
  - LEUKOENCEPHALOPATHY [None]
